FAERS Safety Report 5163167-6 (Version None)
Quarter: 2006Q4

REPORT INFORMATION
  Report Type: 
  Country: None (occurrence: None)
  Receive Date: 20061204
  Receipt Date: 20061106
  Transmission Date: 20070319
  Serious: Yes (Life-Threatening, Hospitalization, Other)
  Sender: FDA-Public Use
  Company Number: JP-BAYER-200611190BYL

PATIENT
  Age: 43 Year
  Sex: Female
  Weight: 47 kg

DRUGS (34)
  1. BAY43-9006 [Suspect]
     Indication: NON-SMALL CELL LUNG CANCER
     Dosage: TOTAL DAILY DOSE: 400 MG  UNIT DOSE: 400 MG
     Route: 048
     Dates: start: 20061012, end: 20061030
  2. TAXOL [Suspect]
     Indication: NON-SMALL CELL LUNG CANCER
     Dosage: UNIT DOSE: 30 MG
     Route: 042
     Dates: start: 20061012, end: 20061012
  3. TAXOL [Suspect]
     Route: 042
     Dates: start: 20061106, end: 20061106
  4. PARAPLATIN [Suspect]
     Indication: NON-SMALL CELL LUNG CANCER
     Dosage: UNIT DOSE: 150 MG
     Route: 041
     Dates: start: 20061012, end: 20061012
  5. DOCETAXEL HYDRATE [Suspect]
     Indication: NON-SMALL CELL LUNG CANCER
     Route: 042
     Dates: start: 20061122, end: 20061122
  6. TAXOTERE [Suspect]
     Indication: NON-SMALL CELL LUNG CANCER
     Route: 041
     Dates: start: 20061122, end: 20061122
  7. ZANTAC [Concomitant]
     Dosage: UNIT DOSE: 100 MG
     Route: 041
     Dates: start: 20061012, end: 20061012
  8. ZANTAC [Concomitant]
     Dosage: UNIT DOSE: 100 MG
     Route: 041
     Dates: start: 20061106, end: 20061106
  9. DECADRON [Concomitant]
     Dosage: UNIT DOSE: 4 MG
     Route: 041
     Dates: start: 20061012, end: 20061012
  10. DECADRON [Concomitant]
     Dosage: UNIT DOSE: 8 MG
     Route: 041
     Dates: start: 20061106, end: 20061106
  11. DECADRON [Concomitant]
     Dosage: UNIT DOSE: 8 MG
     Route: 041
     Dates: start: 20061012, end: 20061012
  12. DECADRON [Concomitant]
     Dosage: UNIT DOSE: 4 MG
     Route: 041
     Dates: start: 20061106, end: 20061106
  13. DECADRON [Concomitant]
     Dosage: UNIT DOSE: 8 MG
     Route: 041
     Dates: start: 20061122, end: 20061122
  14. KYTRIL [Concomitant]
     Dosage: UNIT DOSE: 3 MG
     Route: 041
     Dates: start: 20061012, end: 20061012
  15. KYTRIL [Concomitant]
     Dosage: UNIT DOSE: 3 MG
     Route: 041
     Dates: start: 20061106, end: 20061106
  16. KYTRIL [Concomitant]
     Dosage: UNIT DOSE: 3 MG
     Route: 041
     Dates: start: 20061122, end: 20061122
  17. RESTAMIN [Concomitant]
     Dosage: UNIT DOSE: 10 MG
     Route: 048
     Dates: start: 20061106, end: 20061106
  18. RESTAMIN [Concomitant]
     Dosage: UNIT DOSE: 10 MG
     Route: 048
     Dates: start: 20061012, end: 20061012
  19. NORVASC [Concomitant]
     Indication: HYPERTENSION
     Dosage: UNIT DOSE: 50 MG
     Route: 048
     Dates: start: 20060926
  20. NITRODERM [Concomitant]
     Indication: HYPERTENSION
     Dosage: UNIT DOSE: 25 MG
     Dates: start: 20061010
  21. MAGLAX [Concomitant]
     Indication: CONSTIPATION
     Dosage: TOTAL DAILY DOSE: 990 MG  UNIT DOSE: 330 MG
     Route: 048
     Dates: start: 20061017
  22. PURSENNID [Concomitant]
     Indication: CONSTIPATION
     Dosage: UNIT DOSE: 12 MG
     Dates: start: 20061017
  23. LANSOPRAZOLE [Concomitant]
     Indication: PROPHYLAXIS AGAINST GASTROINTESTINAL ULCER
     Dosage: TOTAL DAILY DOSE: 30 MG  UNIT DOSE: 30 MG
     Route: 048
     Dates: start: 20060930
  24. LOXONIN [Concomitant]
     Indication: CANCER PAIN
     Dosage: TOTAL DAILY DOSE: 180 MG  UNIT DOSE: 60 MG
     Route: 048
     Dates: start: 20060930
  25. CYTOTEC [Concomitant]
     Indication: PROPHYLAXIS AGAINST GASTROINTESTINAL ULCER
     Dosage: TOTAL DAILY DOSE: 600 ?G  UNIT DOSE: 200 ?G
     Route: 048
     Dates: start: 20061005
  26. OLMETEC [Concomitant]
     Indication: HYPERTENSION
     Dosage: TOTAL DAILY DOSE: 20 MG  UNIT DOSE: 20 MG
     Route: 048
     Dates: start: 20061005
  27. ADONA [Concomitant]
     Indication: HAEMOPTYSIS
     Dosage: TOTAL DAILY DOSE: 90 MG  UNIT DOSE: 30 MG
     Route: 048
     Dates: start: 20061031
  28. TRANSAMIN [Concomitant]
     Indication: HAEMOPTYSIS
     Dosage: TOTAL DAILY DOSE: 750 MG  UNIT DOSE: 250 MG
     Route: 048
     Dates: start: 20061031
  29. OPSO [Concomitant]
     Indication: CANCER PAIN
     Dosage: UNIT DOSE: 5 MG
     Route: 048
     Dates: start: 20061108
  30. RESTAMIN [Concomitant]
     Indication: PRURITUS
     Route: 061
     Dates: start: 20061110, end: 20061117
  31. VOLTAREN [Concomitant]
     Indication: PAIN
     Dosage: UNIT DOSE: 25 MG
     Route: 048
     Dates: start: 20061118
  32. MUCOSTA [Concomitant]
     Indication: GASTRITIS PROPHYLAXIS
     Dosage: UNIT DOSE: 100 MG
     Route: 048
     Dates: start: 20061118
  33. VOLTAREN [Concomitant]
     Indication: PAIN
     Dosage: UNIT DOSE: 25 MG
     Route: 054
     Dates: start: 20061012, end: 20061012
  34. MS CONTIN [Concomitant]
     Indication: PAIN
     Dosage: UNIT DOSE: 10 MG
     Route: 048
     Dates: start: 20061012, end: 20061012

REACTIONS (4)
  - ANAPHYLACTIC SHOCK [None]
  - EOSINOPHIL COUNT INCREASED [None]
  - NEUTROPHIL COUNT DECREASED [None]
  - PNEUMONIA [None]
